FAERS Safety Report 9718656 (Version 1)
Quarter: 2013Q4

REPORT INFORMATION
  Report Type: Spontaneous
  Country: US (occurrence: US)
  Receive Date: 20131125
  Receipt Date: 20131125
  Transmission Date: 20140711
  Serious: No
  Sender: FDA-Public Use
  Company Number: US-VIVUS-2013V1000035

PATIENT
  Age: 29 Year
  Sex: Female

DRUGS (2)
  1. QSYMIA 3.75MG/23MG [Suspect]
     Indication: PRODUCT USED FOR UNKNOWN INDICATION
     Dosage: DAILY DOSE: 1 CAPSULE,
     Route: 048
  2. LOESTRIN [Interacting]
     Indication: CONTRACEPTION
     Dosage: DAILY DOSE: 1 TABLET,

REACTIONS (4)
  - Pelvic pain [Not Recovered/Not Resolved]
  - Abdominal pain [Not Recovered/Not Resolved]
  - Vaginal haemorrhage [Not Recovered/Not Resolved]
  - Drug interaction [Not Recovered/Not Resolved]
